FAERS Safety Report 23546806 (Version 2)
Quarter: 2024Q2

REPORT INFORMATION
  Report Type: Other
  Country: US (occurrence: None)
  Receive Date: 20240221
  Receipt Date: 20240402
  Transmission Date: 20240716
  Serious: Yes (Other)
  Sender: FDA-Public Use
  Company Number: US-ROCHE-3511823

PATIENT
  Age: 80 Year
  Sex: Male

DRUGS (3)
  1. AVASTIN [Suspect]
     Active Substance: BEVACIZUMAB
     Indication: Colon cancer
     Dosage: INFUSE 7.5MG/KG (600MG) INTRAVENOUSLY EVERY 21 DAY(S)
     Route: 042
  2. AVASTIN [Suspect]
     Active Substance: BEVACIZUMAB
     Dosage: INFUSE 7.5MG/KG (600MG) INTRAVENOUSLY EVERY 21 DAY(S)
     Route: 042
  3. XELODA [Suspect]
     Active Substance: CAPECITABINE
     Indication: Colon cancer
     Dosage: TAKE 3 TABLET(S) BY MOUTH TWICE A DAY 1 WEEK(S) ON, 1 WEEK(S) OFF THEN REPEAT
     Route: 048

REACTIONS (2)
  - Neoplasm malignant [Unknown]
  - Pain [Unknown]
